FAERS Safety Report 19068313 (Version 3)
Quarter: 2023Q1

REPORT INFORMATION
  Report Type: Report from Study
  Country: IT (occurrence: None)
  Receive Date: 20210329
  Receipt Date: 20230118
  Transmission Date: 20230417
  Serious: Yes (Hospitalization)
  Sender: FDA-Public Use
  Company Number: IT-ROCHE-2788576

PATIENT
  Age: 66 Year
  Sex: Male
  Weight: 67 kg

DRUGS (28)
  1. INVESTIGATIONAL PRODUCT [Suspect]
     Active Substance: INVESTIGATIONAL PRODUCT
     Indication: Neoplasm
     Dosage: MOST RECENT DOSE PRIOR TO AE AND SAE ONSET ON 19-JAN-2021 AT 1:02 PM TILL 1:32 PM (TOTAL VOLUME 50 M
     Route: 041
     Dates: start: 20200914
  2. ATEZOLIZUMAB [Suspect]
     Active Substance: ATEZOLIZUMAB
     Indication: Neoplasm
     Dosage: MOST RECENT DOSE PRIOR TO AE AND SAE ONSET ON 05-JAN-2021 AT 2:20 PM TILL 2:50 PM (TOTAL VOLUME 250
     Route: 041
     Dates: start: 20200914
  3. ACETAMINOPHEN [Concomitant]
     Active Substance: ACETAMINOPHEN
     Indication: Myalgia
     Dates: start: 20201007
  4. ACETAMINOPHEN [Concomitant]
     Active Substance: ACETAMINOPHEN
     Indication: Arthralgia
     Dates: start: 20201007
  5. ACETAMINOPHEN [Concomitant]
     Active Substance: ACETAMINOPHEN
     Indication: Pyrexia
     Dates: start: 20210206, end: 20210207
  6. LOPERAMIDE [Concomitant]
     Active Substance: LOPERAMIDE
     Indication: Diarrhoea
     Dates: start: 20210112
  7. AMOXICILLIN [Concomitant]
     Active Substance: AMOXICILLIN
     Indication: Erythema nodosum
     Dates: start: 20210126
  8. PIPERACILLIN AND TAZOBACTAM [Concomitant]
     Active Substance: PIPERACILLIN SODIUM\TAZOBACTAM SODIUM
     Indication: Pyrexia
     Dates: start: 20210207, end: 20210215
  9. PREDNISONE [Concomitant]
     Active Substance: PREDNISONE
     Indication: Pyrexia
     Dates: start: 20210207, end: 20210208
  10. PREDNISONE [Concomitant]
     Active Substance: PREDNISONE
     Indication: Erythema nodosum
     Dates: start: 20210207, end: 20210208
  11. PREDNISONE [Concomitant]
     Active Substance: PREDNISONE
     Dates: start: 20210223, end: 20210301
  12. PREDNISONE [Concomitant]
     Active Substance: PREDNISONE
     Dates: start: 20210302, end: 20210308
  13. PREDNISONE [Concomitant]
     Active Substance: PREDNISONE
     Dates: start: 20210129, end: 20210208
  14. PREDNISONE [Concomitant]
     Active Substance: PREDNISONE
     Dates: start: 20210309
  15. PREDNISONE [Concomitant]
     Active Substance: PREDNISONE
     Dates: start: 20210215, end: 20210222
  16. SULFAMETHOXAZOLE\TRIMETHOPRIM [Concomitant]
     Active Substance: SULFAMETHOXAZOLE\TRIMETHOPRIM
     Indication: Pyrexia
     Dates: start: 20210215
  17. ACYCLOVIR [Concomitant]
     Active Substance: ACYCLOVIR
     Indication: Pyrexia
     Dates: start: 20210215
  18. CALCIUM\CHOLECALCIFEROL [Concomitant]
     Active Substance: CALCIUM\CHOLECALCIFEROL
     Dosage: NUTRITIONAL SUPPLEMENT
     Dates: start: 20201019
  19. TAMSULOSIN [Concomitant]
     Active Substance: TAMSULOSIN
     Indication: Urinary retention
     Dates: start: 20201027
  20. IRON [Concomitant]
     Active Substance: IRON
     Dates: start: 20201215
  21. HERBALS\SAW PALMETTO [Concomitant]
     Active Substance: HERBALS\SAW PALMETTO
     Dates: start: 20201217
  22. OMEPRAZOLE [Concomitant]
     Active Substance: OMEPRAZOLE
     Dosage: GASTRIC PROTECTION
     Dates: start: 20210207
  23. HEPARIN [Concomitant]
     Active Substance: HEPARIN SODIUM
     Dates: start: 20210208
  24. FOLINA [Concomitant]
     Dates: start: 20210215
  25. FILGRASTIM [Concomitant]
     Active Substance: FILGRASTIM
     Indication: Neutropenia
     Dosage: 30 UG
     Dates: start: 20210310, end: 20210312
  26. BISOPROLOL [Concomitant]
     Active Substance: BISOPROLOL
     Indication: Hypertension
     Dates: start: 20210223
  27. PREGABALIN [Concomitant]
     Active Substance: PREGABALIN
     Indication: Myalgia
     Dates: start: 20210112
  28. NYSTATIN [Concomitant]
     Active Substance: NYSTATIN
     Indication: Oral candidiasis
     Dates: start: 20210202, end: 20210223

REACTIONS (1)
  - Neutropenia [Recovered/Resolved]

NARRATIVE: CASE EVENT DATE: 20210309
